FAERS Safety Report 10184759 (Version 2)
Quarter: 2014Q2

REPORT INFORMATION
  Report Type: Report from Study
  Country: US (occurrence: US)
  Receive Date: 20140521
  Receipt Date: 20140521
  Transmission Date: 20141212
  Serious: Yes (Hospitalization, Other)
  Sender: FDA-Public Use
  Company Number: PHEH2013US020164

PATIENT
  Age: 83 Year
  Sex: Male
  Weight: 90.9 kg

DRUGS (31)
  1. TOBI [Suspect]
     Indication: PNEUMONIA PSEUDOMONAL
     Dosage: 1 DF, BID X10 DAY
     Route: 055
     Dates: start: 20130707
  2. TOBI [Suspect]
     Indication: BRONCHIECTASIS
     Dosage: 1 DF, BID
     Route: 055
     Dates: start: 20140409, end: 20140506
  3. TOBI [Suspect]
     Indication: CHRONIC OBSTRUCTIVE PULMONARY DISEASE
  4. TOBI [Suspect]
     Indication: PROSTATIC SPECIFIC ANTIGEN INCREASED
  5. PREDNISONE [Concomitant]
     Dosage: 10 MG, QD
     Route: 048
  6. PREDNISONE [Concomitant]
     Dosage: 40 MG, UNK
  7. PREDNISONE [Concomitant]
     Dosage: 10 MG, TAPER EVERY 3RD DAY
  8. TORSEMIDE [Concomitant]
     Dosage: UNK
  9. TORSEMIDE [Concomitant]
     Dosage: 20 MG, DAILY
     Route: 048
     Dates: start: 20140409
  10. POTASSIUM [Concomitant]
     Dosage: UNK
  11. LISINOPRIL [Concomitant]
     Dosage: UNK
  12. LISINOPRIL [Concomitant]
     Dosage: 5 MG, BID
     Route: 048
     Dates: start: 20140409
  13. MINIPRESS [Concomitant]
     Dosage: UNK
  14. VERAPAMIL [Concomitant]
     Dosage: UNK
  15. VERAPAMIL [Concomitant]
     Dosage: 180 MG, UNK
     Route: 048
     Dates: start: 20140409
  16. WARFARIN [Concomitant]
     Dosage: UNK
  17. WARFARIN [Concomitant]
     Dosage: UNK
     Dates: start: 20140409
  18. COMBIVENT [Concomitant]
  19. COUMADIN//COUMARIN [Concomitant]
     Dosage: UNK
     Dates: end: 20140410
  20. ALBUTEROL + IPRATROPIUM [Concomitant]
     Dosage: Q4H WHILE AWAKE (ALBUTEROL 2.5MG-IPRATROPIUM 0.5MG)
     Dates: start: 20140409
  21. AZITHROMYCIN [Concomitant]
     Dosage: 500 MG, DAILY
     Route: 048
     Dates: start: 20140410
  22. CEFTRIAXONE [Concomitant]
     Dosage: (1 GM, 50 ML) DAILY
     Route: 042
     Dates: start: 20140409
  23. GUAIFENESIN [Concomitant]
     Dosage: 1200 MG, BID
     Route: 048
     Dates: start: 20140409
  24. METHYLPREDNISOLONE [Concomitant]
     Dosage: 40 MG, Q8H
     Route: 042
     Dates: start: 20140409
  25. PANTOPRAZOLE [Concomitant]
     Dosage: 40 MG, DAILY
     Route: 048
     Dates: start: 20140409
  26. POTASSIUM CHLORIDE [Concomitant]
     Dosage: 20 MEQ/KG, DAILY
     Route: 048
     Dates: start: 20140409
  27. SODIUM CHLORIDE [Concomitant]
     Dosage: 10 ML, Q8H
     Route: 042
     Dates: start: 20140409
  28. VENTOLINE INHALATOR [Concomitant]
     Indication: BRONCHIECTASIS
     Dosage: UNK UKN, PRN
     Route: 055
  29. VENTOLINE INHALATOR [Concomitant]
     Indication: CHRONIC OBSTRUCTIVE PULMONARY DISEASE
  30. VENTOLINE INHALATOR [Concomitant]
     Indication: PROSTATIC SPECIFIC ANTIGEN INCREASED
  31. ALBUTEROL [Concomitant]
     Indication: DYSPNOEA
     Dosage: 10 ML, UNK
     Route: 048

REACTIONS (26)
  - Chronic obstructive pulmonary disease [Unknown]
  - Pneumonia [Unknown]
  - Aortic arteriosclerosis [Unknown]
  - Aortic aneurysm [Unknown]
  - Dyspnoea [Recovered/Resolved]
  - Emphysema [Unknown]
  - Haemoptysis [Unknown]
  - Bronchitis [Unknown]
  - Rib fracture [Unknown]
  - Arthritis [Unknown]
  - Pleural fibrosis [Unknown]
  - Bacterial test positive [Unknown]
  - Prothrombin time prolonged [Unknown]
  - Blood glucose increased [Unknown]
  - Blood urea increased [Unknown]
  - Haematocrit decreased [Unknown]
  - Haemoglobin decreased [Unknown]
  - Lymphocyte count decreased [Unknown]
  - Neutrophil count increased [Unknown]
  - Red blood cell count decreased [Unknown]
  - White blood cell count increased [Unknown]
  - Osteopenia [Unknown]
  - Haematoma [Unknown]
  - Oedema peripheral [Unknown]
  - Swelling face [Unknown]
  - Malaise [Unknown]
